FAERS Safety Report 8598702-9 (Version None)
Quarter: 2012Q3

REPORT INFORMATION
  Report Type: 
  Country: None (occurrence: None)
  Receive Date: 20120816
  Receipt Date: 20120112
  Transmission Date: 20120928
  Serious: Yes (Other)
  Sender: FDA-Public Use
  Company Number: US-ROCHE-1100565

PATIENT
  Age: 53 Year
  Sex: Male

DRUGS (4)
  1. ASPIRIN [Concomitant]
     Route: 048
  2. LOPRESSOR [Concomitant]
     Route: 048
  3. HEPARIN [Concomitant]
     Dosage: 1000 U/HR
  4. ACTIVASE [Suspect]
     Indication: ACUTE MYOCARDIAL INFARCTION
     Dosage: OVER 3 HOURS, 60MGM 1ST HOUR, 20 MGM SECOND HOUR

REACTIONS (3)
  - NAUSEA [None]
  - CHEST PAIN [None]
  - EXTRASYSTOLES [None]
